FAERS Safety Report 10803433 (Version 6)
Quarter: 2015Q3

REPORT INFORMATION
  Report Type: Report from Study
  Country: US (occurrence: US)
  Receive Date: 20150217
  Receipt Date: 20150826
  Transmission Date: 20151125
  Serious: Yes (Other)
  Sender: FDA-Public Use
  Company Number: US-ALEXION-A201500468

PATIENT

DRUGS (1)
  1. SOLIRIS [Suspect]
     Active Substance: ECULIZUMAB
     Indication: HAEMOLYTIC URAEMIC SYNDROME
     Route: 042

REACTIONS (14)
  - Muscle tightness [Unknown]
  - Blood pressure difference of extremities [Unknown]
  - Mastitis [Unknown]
  - Diarrhoea [Recovered/Resolved]
  - Constipation [Unknown]
  - Pain [Unknown]
  - Vomiting [Recovered/Resolved]
  - Back pain [Recovering/Resolving]
  - Abdominal pain [Unknown]
  - Breast pain [Recovered/Resolved]
  - Breast pain [Unknown]
  - Ligament sprain [Unknown]
  - Haemoglobin decreased [Unknown]
  - Hypoaesthesia [Unknown]

NARRATIVE: CASE EVENT DATE: 201502
